FAERS Safety Report 7944177-X (Version None)
Quarter: 2011Q4

REPORT INFORMATION
  Report Type: 
  Country: None (occurrence: None)
  Receive Date: 20111129
  Receipt Date: 20111118
  Transmission Date: 20120403
  Serious: Yes (Hospitalization)
  Sender: FDA-Public Use
  Company Number: DK-BIOGENIDEC-2011BI039150

PATIENT
  Age: 35 Year
  Sex: Female

DRUGS (6)
  1. TYSABRI [Suspect]
     Indication: MULTIPLE SCLEROSIS
     Route: 042
     Dates: start: 20110501
  2. TYSABRI [Suspect]
     Route: 042
     Dates: start: 20110101, end: 20111001
  3. CALCIUM [Concomitant]
  4. VITAMIN D [Concomitant]
  5. BACLOFEN [Concomitant]
  6. GABAPENTIN [Concomitant]

REACTIONS (2)
  - VAGINAL CANCER [None]
  - MULTIPLE SCLEROSIS RELAPSE [None]
